FAERS Safety Report 11806456 (Version 1)
Quarter: 2015Q4

REPORT INFORMATION
  Report Type: Spontaneous
  Country: GB (occurrence: GB)
  Receive Date: 20151207
  Receipt Date: 20151207
  Transmission Date: 20160305
  Serious: Yes (Other)
  Sender: FDA-Public Use
  Company Number: GB-BAYER-2015-479665

PATIENT
  Age: 36 Year
  Sex: Female
  Weight: 128 kg

DRUGS (1)
  1. MIRENA [Suspect]
     Active Substance: LEVONORGESTREL
     Indication: POLYCYSTIC OVARIES
     Dosage: 20 MCG/24HR, CONT
     Route: 015
     Dates: start: 201506

REACTIONS (2)
  - Palpitations [Unknown]
  - Labile hypertension [Unknown]
